FAERS Safety Report 21985160 (Version 1)
Quarter: 2023Q1

REPORT INFORMATION
  Report Type: Report from Study
  Country: US (occurrence: US)
  Receive Date: 20230213
  Receipt Date: 20230213
  Transmission Date: 20230417
  Serious: Yes (Hospitalization)
  Sender: FDA-Public Use
  Company Number: US-MYLANLABS-2023M1014988

PATIENT
  Age: 57 Year
  Sex: Female

DRUGS (9)
  1. PROMETHAZINE [Suspect]
     Active Substance: PROMETHAZINE HYDROCHLORIDE
     Indication: Abdominal pain upper
     Dosage: UNK
     Route: 048
  2. PROMETHAZINE [Suspect]
     Active Substance: PROMETHAZINE HYDROCHLORIDE
     Indication: Nausea
  3. PROMETHAZINE [Suspect]
     Active Substance: PROMETHAZINE HYDROCHLORIDE
     Indication: Diarrhoea
  4. PROMETHAZINE [Suspect]
     Active Substance: PROMETHAZINE HYDROCHLORIDE
     Indication: Symptomatic treatment
  5. ONDANSETRON [Suspect]
     Active Substance: ONDANSETRON
     Indication: Abdominal pain upper
     Dosage: UNK
     Route: 048
  6. ONDANSETRON [Suspect]
     Active Substance: ONDANSETRON
     Indication: Nausea
  7. ONDANSETRON [Suspect]
     Active Substance: ONDANSETRON
     Indication: Vomiting
  8. ONDANSETRON [Suspect]
     Active Substance: ONDANSETRON
     Indication: Diarrhoea
  9. ONDANSETRON [Suspect]
     Active Substance: ONDANSETRON
     Indication: Symptomatic treatment

REACTIONS (1)
  - Drug ineffective [Unknown]
